FAERS Safety Report 6666255-8 (Version None)
Quarter: 2010Q2

REPORT INFORMATION
  Report Type: 
  Country: None (occurrence: None)
  Receive Date: 20100402
  Receipt Date: 20100329
  Transmission Date: 20101027
  Serious: Yes (Other)
  Sender: FDA-Public Use
  Company Number: US-RB-004183-10

PATIENT
  Sex: Female

DRUGS (2)
  1. SUBOXONE [Suspect]
     Route: 060
     Dates: start: 20100303, end: 20100318
  2. SUBOXONE [Suspect]
     Route: 060
     Dates: start: 20100319

REACTIONS (7)
  - BACK PAIN [None]
  - BREAST CANCER FEMALE [None]
  - CRYING [None]
  - HYPERHIDROSIS [None]
  - INCREASED APPETITE [None]
  - PAIN IN EXTREMITY [None]
  - VOMITING [None]
